FAERS Safety Report 5968669-8 (Version None)
Quarter: 2008Q4

REPORT INFORMATION
  Report Type: 
  Country: None (occurrence: None)
  Receive Date: 20081126
  Receipt Date: 20081124
  Transmission Date: 20090506
  Serious: Yes (Life-Threatening, Hospitalization, Other)
  Sender: FDA-Public Use
  Company Number: US-BRISTOL-MYERS SQUIBB COMPANY-14157366

PATIENT
  Age: 68 Year
  Sex: Female

DRUGS (10)
  1. ORENCIA [Suspect]
     Indication: RHEUMATOID ARTHRITIS
     Dosage: DRUG INTERRUPTED: MAR-2007 ALSO GIVEN ON 26-APR-2007 AND RESUMED ON 31-JUL-2007 AND HAS CONTINUED
     Route: 042
     Dates: start: 20060811
  2. METHOTREXATE [Suspect]
     Dosage: RESTARTED 29-MAR-2007
     Route: 058
  3. FOLATE [Suspect]
  4. PLAQUENIL [Concomitant]
  5. FLEXERIL [Concomitant]
  6. LORTAB [Concomitant]
  7. PREDNISONE TAB [Concomitant]
  8. IBUPROFEN TABLETS [Concomitant]
  9. HYZAAR [Concomitant]
     Dosage: 1 DOSAGE FORM = 50/12.5 (UNITS NOT SPECIFIED)
  10. TRAZODONE HCL [Concomitant]

REACTIONS (2)
  - ACUTE RESPIRATORY DISTRESS SYNDROME [None]
  - ASTHMA [None]
